FAERS Safety Report 10602305 (Version 1)
Quarter: 2014Q4

REPORT INFORMATION
  Report Type: Report from Study
  Country: MX (occurrence: MX)
  Receive Date: 20141124
  Receipt Date: 20141124
  Transmission Date: 20150529
  Serious: Yes (Other)
  Sender: FDA-Public Use
  Company Number: PHHY2014MX152583

PATIENT
  Age: 56 Year
  Sex: Female

DRUGS (9)
  1. ZOFILIP [Concomitant]
     Indication: BLOOD TRIGLYCERIDES ABNORMAL
  2. PAXIL [Concomitant]
     Active Substance: PAROXETINE HYDROCHLORIDE
     Indication: DEPRESSION
     Dosage: 1 UKN, QD
     Route: 048
  3. ATEMPERATOR//VALPROATE MAGNESIUM [Concomitant]
     Indication: HEADACHE
     Dosage: 2 UKN, QD
     Route: 065
     Dates: start: 2012
  4. ZOFILIP [Concomitant]
     Indication: BLOOD CHOLESTEROL ABNORMAL
     Dosage: 1 UKN, QD
     Route: 065
     Dates: start: 2013
  5. AROPAX [Suspect]
     Active Substance: PAROXETINE HYDROCHLORIDE
     Indication: DEPRESSION
     Dosage: 2.5 DF (20MG), QD
     Route: 048
  6. DIOVAN [Suspect]
     Active Substance: VALSARTAN
     Indication: HYPERTENSION
     Dosage: 80 MG, QD
     Route: 048
  7. PAXIL [Concomitant]
     Active Substance: PAROXETINE HYDROCHLORIDE
     Dosage: 1 UKN, BID
     Route: 048
  8. LEVOTHYROXINE [Concomitant]
     Active Substance: LEVOTHYROXINE
     Indication: THYROID DISORDER
     Dosage: 75 MG, QD
     Route: 065
     Dates: start: 2011
  9. ZOLPIDEM [Concomitant]
     Active Substance: ZOLPIDEM\ZOLPIDEM TARTRATE
     Indication: SLEEP DISORDER
     Dosage: 0.5 UKN, QD
     Route: 065
     Dates: start: 2012

REACTIONS (4)
  - Eye infection [Not Recovered/Not Resolved]
  - Eye haemorrhage [Not Recovered/Not Resolved]
  - Blood pressure increased [Unknown]
  - Dry eye [Unknown]

NARRATIVE: CASE EVENT DATE: 201411
